FAERS Safety Report 5581004-2 (Version None)
Quarter: 2007Q4

REPORT INFORMATION
  Report Type: 
  Country: None (occurrence: None)
  Receive Date: 20071130
  Receipt Date: 20070710
  Transmission Date: 20080405
  Serious: No
  Sender: FDA-Public Use
  Company Number: US200707002749

PATIENT
  Age: 57 Year
  Sex: Male
  Weight: 121.5 kg

DRUGS (20)
  1. BYETTA [Suspect]
     Indication: TYPE 2 DIABETES MELLITUS
     Dosage: 5 UG, 2/D, 10 UG, 2/D, SUBCUTANEOUS
     Route: 058
     Dates: start: 20070601, end: 20070701
  2. BYETTA [Suspect]
     Indication: TYPE 2 DIABETES MELLITUS
     Dosage: 5 UG, 2/D, 10 UG, 2/D, SUBCUTANEOUS
     Route: 058
     Dates: start: 20070701
  3. GLIMEPIRIDE [Concomitant]
  4. B12 (CYANOCOBALAMIN-TANNIN COMPLEX) [Concomitant]
  5. B6 ASEDIC (PYRIDOXINE HYDROCHLORIDE) [Concomitant]
  6. VITAMIN B COMPLEX (BECOTIN) (VITAMIN B COMPLEX UNKNOWN MANUFACTURER) [Concomitant]
  7. ASPIRIN [Concomitant]
  8. FOLIC ACID [Concomitant]
  9. TRICOR [Concomitant]
  10. ZOCOR [Concomitant]
  11. NIASPAN [Concomitant]
  12. ALTACE [Concomitant]
  13. . [Concomitant]
  14. . [Concomitant]
  15. . [Concomitant]
  16. . [Concomitant]
  17. . [Concomitant]
  18. . [Concomitant]
  19. . [Concomitant]
  20. . [Concomitant]

REACTIONS (4)
  - BLOOD GLUCOSE INCREASED [None]
  - FATIGUE [None]
  - NAUSEA [None]
  - WEIGHT DECREASED [None]
